FAERS Safety Report 6315454-3 (Version None)
Quarter: 2009Q3

REPORT INFORMATION
  Report Type: 
  Country: None (occurrence: None)
  Receive Date: 20090819
  Receipt Date: 20090807
  Transmission Date: 20100115
  Serious: Yes (Hospitalization)
  Sender: FDA-Public Use
  Company Number: FR-PFIZER INC-2009251625

PATIENT
  Age: 51 Year

DRUGS (4)
  1. VIAGRA [Suspect]
     Indication: ERECTILE DYSFUNCTION
     Dosage: 50 MG, SINGLE
     Route: 048
     Dates: start: 20090707, end: 20090707
  2. TENORMIN [Concomitant]
     Dosage: UNK
  3. NICARDIPINE HCL [Concomitant]
     Dosage: UNK
  4. XANAX [Concomitant]
     Dosage: UNK

REACTIONS (1)
  - PANCREATITIS ACUTE [None]
